FAERS Safety Report 21631249 (Version 1)
Quarter: 2022Q4

REPORT INFORMATION
  Report Type: Spontaneous
  Country: GB (occurrence: GB)
  Receive Date: 20221123
  Receipt Date: 20221123
  Transmission Date: 20230113
  Serious: Yes (Hospitalization)
  Sender: FDA-Public Use
  Company Number: GB-MHRA-MED-202211111453372590-MYFDK

PATIENT

DRUGS (1)
  1. PREDNISOLONE [Suspect]
     Active Substance: PREDNISOLONE
     Indication: Gout
     Dosage: UNK
     Dates: start: 20221011, end: 20221011

REACTIONS (1)
  - Palpitations [Recovering/Resolving]
